FAERS Safety Report 7248387-9 (Version None)
Quarter: 2011Q1

REPORT INFORMATION
  Report Type: 
  Country: None (occurrence: None)
  Receive Date: 20110127
  Receipt Date: 20110117
  Transmission Date: 20110831
  Serious: Yes (Death)
  Sender: FDA-Public Use
  Company Number: US-CELGENEUS-163-20785-11011878

PATIENT
  Age: 38 Year
  Sex: Female

DRUGS (4)
  1. THALOMID [Suspect]
     Indication: AMYLOIDOSIS
     Route: 048
  2. MELPHALAN [Suspect]
     Indication: AMYLOIDOSIS
     Route: 065
  3. DEXAMETHASONE [Suspect]
     Indication: AMYLOIDOSIS
     Route: 065
  4. MYCOPHENOLATE MOFETIL [Concomitant]
     Route: 065

REACTIONS (5)
  - CARDIAC FAILURE [None]
  - NO THERAPEUTIC RESPONSE [None]
  - HEPATOMEGALY [None]
  - RENAL FAILURE [None]
  - HEPATIC FAILURE [None]
